FAERS Safety Report 15690798 (Version 4)
Quarter: 2019Q3

REPORT INFORMATION
  Report Type: Spontaneous
  Country: US (occurrence: US)
  Receive Date: 20181205
  Receipt Date: 20190805
  Transmission Date: 20191004
  Serious: Yes (Other)
  Sender: FDA-Public Use
  Company Number: US-SA-2018SA306473

PATIENT
  Age: 68 Year
  Sex: Female

DRUGS (1)
  1. PRALUENT [Suspect]
     Active Substance: ALIROCUMAB
     Dosage: 75 MG
     Route: 058
     Dates: start: 201806

REACTIONS (4)
  - Breast cancer [Unknown]
  - Product dose omission [Unknown]
  - Device use error [Unknown]
  - Product dose omission [Unknown]

NARRATIVE: CASE EVENT DATE: 20181113
